FAERS Safety Report 8082441-7 (Version None)
Quarter: 2012Q1

REPORT INFORMATION
  Report Type: 
  Country: None (occurrence: None)
  Receive Date: 20120127
  Receipt Date: 20110219
  Transmission Date: 20120608
  Serious: No
  Sender: FDA-Public Use
  Company Number: US-ABBOTT-11P-163-0706383-00

PATIENT
  Age: 69 Year
  Sex: Female

DRUGS (7)
  1. LEVOTHYROXINE SODIUM [Concomitant]
     Indication: HYPOTHYROIDISM
  2. TRACODONE [Concomitant]
     Indication: HYPERTENSION
     Dosage: AT BEDTIME
  3. DOXYCYCLINE [Concomitant]
     Indication: PRODUCT USED FOR UNKNOWN INDICATION
     Dosage: 100MG 2 TABS DAILY FOR 2 WEEKS
  4. METOPROLOL TARTRATE [Concomitant]
     Indication: HYPERTENSION
  5. HUMIRA [Suspect]
     Indication: CROHN'S DISEASE
     Dates: start: 20100601
  6. METFORMIN HCL [Concomitant]
     Indication: TYPE 2 DIABETES MELLITUS
     Dosage: 500MG 1 TABLET IN MORNING AND TABLET IN AFTERNOON
  7. UNKNOWN DRUG [Concomitant]
     Indication: DEPRESSION

REACTIONS (10)
  - HEADACHE [None]
  - PAIN [None]
  - DYSURIA [None]
  - FEELING ABNORMAL [None]
  - SINUS CONGESTION [None]
  - INFLUENZA LIKE ILLNESS [None]
  - RASH [None]
  - FATIGUE [None]
  - BLISTER [None]
  - GENITAL PAIN [None]
